FAERS Safety Report 9891885 (Version 3)
Quarter: 2017Q4

REPORT INFORMATION
  Report Type: Report from Study
  Country: CA (occurrence: CA)
  Receive Date: 20140212
  Receipt Date: 20171212
  Transmission Date: 20180321
  Serious: Yes (Other)
  Sender: FDA-Public Use
  Company Number: PHHY2011CA80940

PATIENT
  Age: 83 Year
  Sex: Female
  Weight: 51 kg

DRUGS (9)
  1. ASA [Concomitant]
     Active Substance: ASPIRIN
     Route: 048
  2. ZOLEDRONATE [Suspect]
     Active Substance: ZOLEDRONIC ACID
     Route: 042
     Dates: start: 20100916
  3. ZOLEDRONATE [Suspect]
     Active Substance: ZOLEDRONIC ACID
     Route: 042
     Dates: start: 20110916
  4. FERROUS SULFATE. [Concomitant]
     Active Substance: FERROUS SULFATE
     Dosage: 300 MG, QD
  5. ZOLEDRONATE [Suspect]
     Active Substance: ZOLEDRONIC ACID
     Indication: OSTEOPOROSIS
     Route: 042
     Dates: start: 20091006
  6. CAL-500 [Concomitant]
     Dosage: 500 MG, BID
     Route: 048
     Dates: start: 200409
  7. EURO-D [Concomitant]
     Dosage: 10000 UL, 1X WEEKLY
     Dates: start: 201009
  8. SPERSIN [Concomitant]
     Dosage: 1 DF, UNK
     Route: 048
  9. SYMBICOCT [Concomitant]
     Dosage: 2 DF (200), BID

REACTIONS (2)
  - Compression fracture [Unknown]
  - Tremor [Unknown]

NARRATIVE: CASE EVENT DATE: 20131119
